FAERS Safety Report 18258390 (Version 1)
Quarter: 2020Q3

REPORT INFORMATION
  Report Type: Other
  Country: US (occurrence: US)
  Receive Date: 20200911
  Receipt Date: 20200911
  Transmission Date: 20201103
  Serious: No
  Sender: FDA-Public Use
  Company Number: US-LEADIANT BIOSCIENCES INC-2019STPI000561

PATIENT

DRUGS (7)
  1. MATULANE [Suspect]
     Active Substance: PROCARBAZINE HYDROCHLORIDE
     Indication: BRAIN NEOPLASM MALIGNANT
     Dosage: 200 MILLIGRAM QD ON DAYS 8?21
     Route: 048
     Dates: start: 20190703
  2. PROGESTERONE. [Concomitant]
     Active Substance: PROGESTERONE
  3. GLEOSTINE [Concomitant]
     Active Substance: LOMUSTINE
  4. ESTROGEN/METHYLTES [Concomitant]
     Active Substance: ESTROGENS\METHYLTESTOSTERONE
  5. ZOFRAN [Concomitant]
     Active Substance: ONDANSETRON HYDROCHLORIDE
  6. KEPPRA [Concomitant]
     Active Substance: LEVETIRACETAM
  7. TESTOPEL [Concomitant]
     Active Substance: TESTOSTERONE

REACTIONS (1)
  - White blood cell count decreased [Unknown]
